FAERS Safety Report 10043206 (Version 1)
Quarter: 2014Q1

REPORT INFORMATION
  Report Type: Spontaneous
  Country: US (occurrence: None)
  Receive Date: 20140327
  Receipt Date: 20140327
  Transmission Date: 20141002
  Serious: Yes (Disabling)
  Sender: FDA-Public Use
  Company Number: None

PATIENT
  Age: 77 Year
  Sex: Female
  Weight: 50.8 kg

DRUGS (17)
  1. BIOTENE DRY MOUTH ORAL RINSE [Suspect]
     Indication: DRY MOUTH
     Route: 048
     Dates: start: 20140323, end: 20140325
  2. BIOTENE DRY MOUTH ORAL RINSE [Suspect]
     Indication: SJOGREN^S SYNDROME
     Route: 048
     Dates: start: 20140323, end: 20140325
  3. BIOTENE [Suspect]
     Indication: SJOGREN^S SYNDROME
     Dosage: TREE X AT NIGHT TAKEN BY MOUTH
     Route: 048
     Dates: start: 20140324
  4. BIOTENE [Suspect]
     Indication: DRY MOUTH
     Dosage: TREE X AT NIGHT TAKEN BY MOUTH
     Route: 048
     Dates: start: 20140324
  5. SYNTHROID [Concomitant]
  6. ATROVENT [Concomitant]
  7. CLONAZEPAM [Concomitant]
  8. LEXAPRO [Concomitant]
  9. RESTASIS EYE DROPS [Concomitant]
  10. CALCIUM [Concomitant]
  11. VITAMIN D [Concomitant]
  12. MAGNESIUM CITRATE [Concomitant]
  13. COQ10 [Concomitant]
  14. OMEGA 3 FISH OIL (FISH OIL) [Concomitant]
  15. TART CHERRY [Concomitant]
  16. PROBIOTIC [Concomitant]
  17. MOISTURIZING EYE DROPS [Concomitant]

REACTIONS (9)
  - Product taste abnormal [None]
  - Glossodynia [None]
  - Thermal burn [None]
  - Hypoaesthesia oral [None]
  - Lip swelling [None]
  - Product formulation issue [None]
  - Cheilitis [None]
  - Lip disorder [None]
  - Lip pain [None]
